FAERS Safety Report 21899808 (Version 19)
Quarter: 2024Q1

REPORT INFORMATION
  Report Type: Spontaneous
  Country: US (occurrence: US)
  Receive Date: 20230123
  Receipt Date: 20240213
  Transmission Date: 20240410
  Serious: Yes (Hospitalization)
  Sender: FDA-Public Use
  Company Number: US-PFIZER INC-PV202300012606

PATIENT
  Age: 80 Year
  Sex: Female
  Weight: 56.236 kg

DRUGS (4)
  1. IBRANCE [Suspect]
     Active Substance: PALBOCICLIB
     Indication: Breast cancer metastatic
     Dosage: 125 MG, 1X DAILY 21 DAYS THEN OFF FOR 7 DAYS
     Route: 048
     Dates: start: 202209
  2. IBRANCE [Suspect]
     Active Substance: PALBOCICLIB
     Dosage: 100 MG, FOR 21 DAYS OFF 7 DAYS
     Route: 048
  3. IBRANCE [Suspect]
     Active Substance: PALBOCICLIB
     Dosage: PATIENT IS TAKING THE MEDICATION IN 3 COUNTS A DAY
     Route: 048
  4. ARIMIDEX [Concomitant]
     Active Substance: ANASTROZOLE
     Dosage: UNK
     Dates: start: 2022

REACTIONS (8)
  - Hypertension [Unknown]
  - Weight increased [Unknown]
  - Hepatic lesion [Recovering/Resolving]
  - Neoplasm progression [Recovered/Resolved]
  - White blood cell count decreased [Recovered/Resolved]
  - Alopecia [Not Recovered/Not Resolved]
  - Oral herpes [Unknown]
  - Intentional product misuse [Unknown]
